FAERS Safety Report 5747968-9 (Version None)
Quarter: 2008Q2

REPORT INFORMATION
  Report Type: 
  Country: None (occurrence: None)
  Receive Date: 20080523
  Receipt Date: 20080520
  Transmission Date: 20081010
  Serious: No
  Sender: FDA-Public Use
  Company Number: US-BAXTER-2008BH004928

PATIENT
  Age: 53 Year
  Sex: Female

DRUGS (3)
  1. HEPARIN SODIUM [Suspect]
     Indication: COAGULOPATHY
     Route: 058
     Dates: start: 20071001, end: 20080314
  2. THYROID TAB [Concomitant]
     Indication: HYPOTHYROIDISM
     Dosage: DOSE UNIT:UNKNOWN
     Route: 048
  3. VITAMIN TAB [Concomitant]
     Indication: PREGNANCY
     Dosage: DOSE UNIT:UNKNOWN
     Route: 048

REACTIONS (7)
  - DIZZINESS [None]
  - DRUG EXPOSURE DURING PREGNANCY [None]
  - FATIGUE [None]
  - HYPOTENSION [None]
  - NAUSEA [None]
  - SWELLING [None]
  - VOMITING [None]
